FAERS Safety Report 23046464 (Version 3)
Quarter: 2024Q3

REPORT INFORMATION
  Report Type: Report from Study
  Country: CA (occurrence: CA)
  Receive Date: 20231009
  Receipt Date: 20240716
  Transmission Date: 20241017
  Serious: Yes (Hospitalization, Other)
  Sender: JOHNSON AND JOHNSON
  Company Number: CA-JNJFOC-20230641423

PATIENT
  Age: 63 Year
  Sex: Male

DRUGS (2)
  1. REMICADE [Suspect]
     Active Substance: INFLIXIMAB
     Indication: Crohn^s disease
     Dosage: THERAPY START DATE ALSO REPORTED AS 26-DEC-2017
     Route: 041
     Dates: start: 20171221
  2. REMICADE [Suspect]
     Active Substance: INFLIXIMAB
     Dosage: RE-INDUCTION 5 MG/KG AT WEEK 0 AND 4 THEN FOLLOWED BY EVERY 8 WEEK MAINTENANCE
     Route: 041

REACTIONS (8)
  - Candida infection [Recovered/Resolved]
  - Intestinal operation [Not Recovered/Not Resolved]
  - Dehydration [Recovered/Resolved]
  - Colostomy [Unknown]
  - Eating disorder [Recovering/Resolving]
  - Asthenia [Recovering/Resolving]
  - Weight decreased [Recovered/Resolved]
  - Off label use [Unknown]

NARRATIVE: CASE EVENT DATE: 20230101
